FAERS Safety Report 16704041 (Version 3)
Quarter: 2024Q3

REPORT INFORMATION
  Report Type: Spontaneous
  Country: GR (occurrence: GR)
  Receive Date: 20190814
  Receipt Date: 20240912
  Transmission Date: 20241017
  Serious: Yes (Death, Other)
  Sender: MYLAN
  Company Number: GR-PFIZER INC-2019107461

PATIENT
  Age: 48 Year
  Sex: Female

DRUGS (8)
  1. PIPERACILLIN SODIUM\TAZOBACTAM SODIUM [Suspect]
     Active Substance: PIPERACILLIN SODIUM\TAZOBACTAM SODIUM
     Indication: Acinetobacter infection
     Dosage: UNK
     Route: 065
  2. PIPERACILLIN SODIUM\TAZOBACTAM SODIUM [Suspect]
     Active Substance: PIPERACILLIN SODIUM\TAZOBACTAM SODIUM
     Indication: Meningitis
  3. VANCOMYCIN [Suspect]
     Active Substance: VANCOMYCIN
     Indication: Meningitis
     Dosage: UNK
     Route: 065
  4. VANCOMYCIN [Suspect]
     Active Substance: VANCOMYCIN
     Indication: Acinetobacter infection
  5. MEROPENEM [Suspect]
     Active Substance: MEROPENEM
     Indication: Meningitis
     Dosage: UNK
     Route: 065
  6. MEROPENEM [Suspect]
     Active Substance: MEROPENEM
     Indication: Acinetobacter infection
  7. GENTAMICIN [Suspect]
     Active Substance: GENTAMICIN
     Indication: Meningitis
     Dosage: UNK
     Route: 065
  8. GENTAMICIN [Suspect]
     Active Substance: GENTAMICIN
     Indication: Acinetobacter infection

REACTIONS (6)
  - Drug resistance [Fatal]
  - Condition aggravated [Unknown]
  - Loss of consciousness [Unknown]
  - Haemodynamic instability [Unknown]
  - Pneumonia aspiration [Unknown]
  - Pyrexia [Unknown]
